FAERS Safety Report 15030285 (Version 3)
Quarter: 2018Q3

REPORT INFORMATION
  Report Type: Spontaneous
  Country: JP (occurrence: JP)
  Receive Date: 20180619
  Receipt Date: 20180726
  Transmission Date: 20181010
  Serious: Yes (Hospitalization, Other)
  Sender: FDA-Public Use
  Company Number: JP-PFIZER INC-2018241703

PATIENT
  Age: 73 Year
  Sex: Male
  Weight: 50 kg

DRUGS (9)
  1. FUROSEMIDE. [Concomitant]
     Active Substance: FUROSEMIDE
     Indication: INAPPROPRIATE ANTIDIURETIC HORMONE SECRETION
  2. ETOPOSIDE. [Suspect]
     Active Substance: ETOPOSIDE
     Indication: SMALL CELL LUNG CANCER
     Dosage: 100 MG/M2, CYCLIC
  3. MOZAVAPTAN [Concomitant]
     Indication: INAPPROPRIATE ANTIDIURETIC HORMONE SECRETION
  4. BETAMETHASONE. [Concomitant]
     Active Substance: BETAMETHASONE
     Indication: BRAIN OEDEMA
     Dosage: 0.25 MG, DAILY
     Route: 048
  5. NACL [Concomitant]
     Active Substance: SODIUM CHLORIDE
     Indication: HYPONATRAEMIA
     Dosage: 6 G, UNK
     Route: 048
  6. CARBOPLATIN. [Suspect]
     Active Substance: CARBOPLATIN
     Indication: SMALL CELL LUNG CANCER
     Dosage: UNK, CYCLIC
  7. FUROSEMIDE. [Concomitant]
     Active Substance: FUROSEMIDE
     Indication: HYPONATRAEMIA
     Dosage: 10 MG, DAILY
     Route: 048
  8. NACL [Concomitant]
     Active Substance: SODIUM CHLORIDE
     Indication: SUPPLEMENTATION THERAPY
  9. MOZAVAPTAN [Concomitant]
     Indication: HYPONATRAEMIA
     Dosage: 30 MG, DAILY
     Route: 048

REACTIONS (5)
  - Hyponatraemia [Recovered/Resolved]
  - Decreased appetite [Not Recovered/Not Resolved]
  - Nausea [Unknown]
  - Headache [Unknown]
  - Bone marrow failure [Unknown]
